FAERS Safety Report 7311881-6 (Version None)
Quarter: 2011Q1

REPORT INFORMATION
  Report Type: 
  Country: None (occurrence: None)
  Receive Date: 20110215
  Receipt Date: 20110215
  Transmission Date: 20110831
  Serious: Yes (Hospitalization, Disabling, Other)
  Sender: FDA-Public Use
  Company Number: None

PATIENT
  Age: 49 Year
  Sex: Female
  Weight: 72.5755 kg

DRUGS (6)
  1. CELEXA [Suspect]
     Indication: ANXIETY
     Dosage: 10 MG  1X / DAY
     Dates: start: 20080101
  2. CELEXA [Suspect]
     Indication: IRRITABLE BOWEL SYNDROME
     Dosage: 10 MG  1X / DAY
     Dates: start: 20080101
  3. CELEXA [Suspect]
     Indication: ANXIETY
     Dosage: 10 MG  1X / DAY
     Dates: start: 20090101
  4. CELEXA [Suspect]
     Indication: IRRITABLE BOWEL SYNDROME
     Dosage: 10 MG  1X / DAY
     Dates: start: 20090101
  5. CELEXA [Suspect]
     Indication: ANXIETY
     Dosage: 10 MG  1X / DAY
     Dates: start: 20100401
  6. CELEXA [Suspect]
     Indication: IRRITABLE BOWEL SYNDROME
     Dosage: 10 MG  1X / DAY
     Dates: start: 20100401

REACTIONS (11)
  - PUPILS UNEQUAL [None]
  - INSOMNIA [None]
  - VISION BLURRED [None]
  - TINNITUS [None]
  - BALANCE DISORDER [None]
  - WEIGHT INCREASED [None]
  - NAUSEA [None]
  - SKIN ODOUR ABNORMAL [None]
  - WEIGHT LOSS POOR [None]
  - PARAESTHESIA [None]
  - DIZZINESS [None]
